FAERS Safety Report 9416969 (Version 1)
Quarter: 2013Q3

REPORT INFORMATION
  Report Type: Spontaneous
  Country: US (occurrence: None)
  Receive Date: 20130722
  Receipt Date: 20130722
  Transmission Date: 20140515
  Serious: Yes (Hospitalization)
  Sender: FDA-Public Use
  Company Number: ACO_36604_2013

PATIENT
  Age: 59 Year
  Sex: Female
  Weight: 62.6 kg

DRUGS (8)
  1. AMPYRA (DALFAMPRIDINE) TABLET, 10MG [Suspect]
     Indication: MULTIPLE SCLEROSIS
     Route: 048
     Dates: start: 201106
  2. AMPYRA (DALFAMPRIDINE) TABLET, 10MG [Suspect]
     Indication: GAIT DISTURBANCE
     Route: 048
     Dates: start: 201106
  3. OXYBUTYNIN [Suspect]
     Route: 048
     Dates: start: 2013
  4. LEVOTHYROXINE\LIOTHYRONINE [Suspect]
     Route: 048
     Dates: start: 2013, end: 201304
  5. LEVOTHYROXINE (LEVOTHYROXINE SODIUM) [Concomitant]
  6. WELLBUTRIN (BUPROPION HYDROCHLORIDE) [Concomitant]
  7. TRAMADOL (TRAMADOL HYDROCHLORIDE) [Concomitant]
  8. VALTREX (VALACICLOVIR HYDROCHLORIDE) [Concomitant]

REACTIONS (10)
  - Kidney infection [None]
  - Renal pain [None]
  - Cystitis [None]
  - Dysuria [None]
  - Urine odour abnormal [None]
  - Fatigue [None]
  - Muscle spasms [None]
  - Hypothyroidism [None]
  - Asthenia [None]
  - Back pain [None]
